FAERS Safety Report 24121837 (Version 1)
Quarter: 2024Q3

REPORT INFORMATION
  Report Type: Spontaneous
  Country: US (occurrence: US)
  Receive Date: 20240722
  Receipt Date: 20240722
  Transmission Date: 20241017
  Serious: No
  Sender: SANOFI AVENTIS
  Company Number: US-SA-SAC20240716001190

PATIENT
  Age: 46 Year
  Sex: Female
  Weight: 84.8 kg

DRUGS (2)
  1. DUPIXENT [Suspect]
     Active Substance: DUPILUMAB
     Indication: Dermatitis atopic
     Dosage: 300 MG, QOW
     Route: 058
     Dates: end: 202404
  2. WEGOVY [Concomitant]
     Active Substance: SEMAGLUTIDE

REACTIONS (7)
  - Blister [Unknown]
  - Skin haemorrhage [Unknown]
  - Scratch [Unknown]
  - Sleep disorder due to a general medical condition [Unknown]
  - Skin exfoliation [Unknown]
  - Pruritus [Unknown]
  - Rash [Unknown]

NARRATIVE: CASE EVENT DATE: 20240701
